FAERS Safety Report 9699047 (Version 1)
Quarter: 2013Q4

REPORT INFORMATION
  Report Type: Spontaneous
  Country: IE (occurrence: IE)
  Receive Date: 20131120
  Receipt Date: 20131120
  Transmission Date: 20140711
  Serious: Yes (Other)
  Sender: FDA-Public Use
  Company Number: IE-GILEAD-2013-0088127

PATIENT
  Age: 71 Year
  Sex: Male

DRUGS (7)
  1. RANOLAZINE [Suspect]
     Indication: ANGINA PECTORIS
     Dosage: 375 MG, BID
     Dates: start: 20131017
  2. LANOXIN PG [Concomitant]
     Dosage: UNK
     Dates: start: 2013
  3. WARFARIN [Concomitant]
  4. ASPIRIN [Concomitant]
  5. VIAGRA [Concomitant]
  6. ROSUVASTATIN [Concomitant]
  7. BISOPROLOL [Concomitant]

REACTIONS (2)
  - Anxiety [Not Recovered/Not Resolved]
  - Tearfulness [Not Recovered/Not Resolved]
